FAERS Safety Report 18390001 (Version 1)
Quarter: 2020Q4

REPORT INFORMATION
  Report Type: Spontaneous
  Country: JP (occurrence: JP)
  Receive Date: 20201016
  Receipt Date: 20201016
  Transmission Date: 20210114
  Serious: Yes (Death, Other)
  Sender: FDA-Public Use
  Company Number: JP-AMGEN-JPNSP2020164846

PATIENT
  Age: 44 Year
  Sex: Male

DRUGS (1)
  1. CORALAN [Suspect]
     Active Substance: IVABRADINE HYDROCHLORIDE
     Indication: CARDIAC FAILURE CHRONIC
     Dosage: 5 MILLIGRAM
     Route: 048
     Dates: start: 20200908

REACTIONS (2)
  - Vomiting [Fatal]
  - Asphyxia [Fatal]

NARRATIVE: CASE EVENT DATE: 20200930
